FAERS Safety Report 8153966-0 (Version None)
Quarter: 2012Q1

REPORT INFORMATION
  Report Type: 
  Country: None (occurrence: None)
  Receive Date: 20120221
  Receipt Date: 20120221
  Transmission Date: 20120608
  Serious: Yes (Disabling)
  Sender: FDA-Public Use
  Company Number: None

PATIENT
  Sex: Female
  Weight: 85.275 kg

DRUGS (1)
  1. ENBREL [Suspect]
     Indication: PSORIASIS
     Dosage: 50 MG PREFILLED SYRINGE
     Route: 058
     Dates: start: 20100901, end: 20110701

REACTIONS (4)
  - HYPOAESTHESIA [None]
  - MULTIPLE SCLEROSIS [None]
  - NERVE COMPRESSION [None]
  - FORMICATION [None]
